FAERS Safety Report 20866076 (Version 1)
Quarter: 2022Q2

REPORT INFORMATION
  Report Type: Spontaneous
  Country: US (occurrence: US)
  Receive Date: 20220524
  Receipt Date: 20220524
  Transmission Date: 20220720
  Serious: No
  Sender: FDA-Public Use
  Company Number: US-BRISTOL-MYERS SQUIBB COMPANY-2022-043498

PATIENT
  Age: 83 Year
  Sex: Female
  Weight: 65.7 kg

DRUGS (1)
  1. REVLIMID [Suspect]
     Active Substance: LENALIDOMIDE
     Indication: Plasma cell myeloma
     Dosage: 15 MG DAILY FOR 3 WEEKS AND 1 WEEK OFF
     Route: 048

REACTIONS (2)
  - Vision blurred [Not Recovered/Not Resolved]
  - Peripheral swelling [Not Recovered/Not Resolved]
